FAERS Safety Report 7568550-7 (Version None)
Quarter: 2011Q2

REPORT INFORMATION
  Report Type: 
  Country: None (occurrence: None)
  Receive Date: 20110623
  Receipt Date: 20110616
  Transmission Date: 20111010
  Serious: Yes (Other)
  Sender: FDA-Public Use
  Company Number: CA-PFIZER INC-2011133770

PATIENT
  Age: 68 Year
  Sex: Female

DRUGS (2)
  1. VASOTEC [Concomitant]
     Indication: HYPERTENSION
     Dosage: UNK
  2. XALATAN [Suspect]
     Indication: GLAUCOMA
     Dosage: ONE DROP DAILY
     Route: 047
     Dates: start: 20110416

REACTIONS (5)
  - BLINDNESS UNILATERAL [None]
  - CATARACT [None]
  - INTRAOCULAR PRESSURE INCREASED [None]
  - DRUG INEFFECTIVE [None]
  - EYE EXCISION [None]
